FAERS Safety Report 9321831 (Version 1)
Quarter: 2013Q2

REPORT INFORMATION
  Report Type: Report from Study
  Country: US (occurrence: US)
  Receive Date: 20130531
  Receipt Date: 20130531
  Transmission Date: 20140414
  Serious: No
  Sender: FDA-Public Use
  Company Number: US-ABBOTT-13P-163-1053433-00

PATIENT
  Age: 42 Year
  Sex: Male
  Weight: 63.56 kg

DRUGS (9)
  1. MARINOL [Suspect]
     Indication: INCREASED APPETITE
     Dates: start: 201301
  2. ALPRAZOLAM [Concomitant]
     Indication: ANXIETY
  3. LEVOXYL [Concomitant]
     Indication: HYPOTHYROIDISM
  4. MORPHINE SULFATE [Concomitant]
     Indication: PAIN
  5. MORPHINE SULFATE [Concomitant]
     Indication: SLEEP DISORDER
  6. CLONAZEPAM [Concomitant]
     Indication: PRODUCT USED FOR UNKNOWN INDICATION
  7. GABAPENTIN [Concomitant]
     Indication: NEURALGIA
  8. XANAX [Concomitant]
     Indication: PRODUCT USED FOR UNKNOWN INDICATION
  9. OXYCODONE [Concomitant]
     Indication: PAIN

REACTIONS (1)
  - Therapeutic response unexpected [Unknown]
